FAERS Safety Report 25412443 (Version 1)
Quarter: 2025Q2

REPORT INFORMATION
  Report Type: Spontaneous
  Country: DE (occurrence: DE)
  Receive Date: 20250609
  Receipt Date: 20250609
  Transmission Date: 20250717
  Serious: Yes (Life-Threatening, Hospitalization)
  Sender: MERCK SHARP & DOHME LLC
  Company Number: DE-DCGMA-25205231

PATIENT
  Age: 56 Year
  Sex: Female
  Weight: 70 kg

DRUGS (5)
  1. SITAGLIPTIN [Suspect]
     Active Substance: SITAGLIPTIN
     Indication: Diabetes mellitus
     Route: 048
  2. HYDROCHLOROTHIAZIDE\RAMIPRIL [Concomitant]
     Active Substance: HYDROCHLOROTHIAZIDE\RAMIPRIL
     Indication: Hypertension
     Route: 048
  3. METFORMIN [Concomitant]
     Active Substance: METFORMIN HYDROCHLORIDE
     Indication: Diabetes mellitus
     Route: 048
  4. METOPROLOL SUCCINAATE [Concomitant]
     Indication: Hypertension
     Route: 048
  5. ERTUGLIFLOZIN [Concomitant]
     Active Substance: ERTUGLIFLOZIN
     Indication: Diabetes mellitus
     Route: 048

REACTIONS (2)
  - Pancreatic carcinoma [Not Recovered/Not Resolved]
  - Jaundice [Not Recovered/Not Resolved]

NARRATIVE: CASE EVENT DATE: 20250405
